FAERS Safety Report 8010074-7 (Version None)
Quarter: 2011Q4

REPORT INFORMATION
  Report Type: 
  Country: None (occurrence: None)
  Receive Date: 20111228
  Receipt Date: 20111219
  Transmission Date: 20120403
  Serious: Yes (Other)
  Sender: FDA-Public Use
  Company Number: DE-BRISTOL-MYERS SQUIBB COMPANY-16305088

PATIENT
  Sex: Female

DRUGS (1)
  1. FOSINOPRIL SODIUM [Suspect]

REACTIONS (1)
  - GASTROSTOMY TUBE INSERTION [None]
